FAERS Safety Report 12647332 (Version 1)
Quarter: 2016Q3

REPORT INFORMATION
  Report Type: Spontaneous
  Country: US (occurrence: None)
  Receive Date: 20160811
  Receipt Date: 20160811
  Transmission Date: 20161109
  Serious: Yes (Life-Threatening, Other)
  Sender: FDA-Public Use
  Company Number: None

PATIENT
  Age: 58 Year
  Sex: Female
  Weight: 72.58 kg

DRUGS (1)
  1. PROLIA [Suspect]
     Active Substance: DENOSUMAB
     Indication: BONE DENSITY DECREASED
     Dosage: INJECTION - 2 EACH YEAR FOR 2 YEARS
     Dates: start: 201301, end: 2014

REACTIONS (6)
  - Pruritus [None]
  - Rash [None]
  - Bone pain [None]
  - Shock [None]
  - Erythema [None]
  - Pain [None]

NARRATIVE: CASE EVENT DATE: 20150115
